FAERS Safety Report 15168825 (Version 2)
Quarter: 2018Q3

REPORT INFORMATION
  Report Type: Spontaneous
  Country: DE (occurrence: DE)
  Receive Date: 20180720
  Receipt Date: 20180725
  Transmission Date: 20181010
  Serious: Yes (Hospitalization, Other)
  Sender: FDA-Public Use
  Company Number: DE-TEVA-2018-DE-929115

PATIENT
  Sex: Male
  Weight: 74 kg

DRUGS (3)
  1. OPIPRAMOL [Suspect]
     Active Substance: OPIPRAMOL
     Indication: PRODUCT USED FOR UNKNOWN INDICATION
     Route: 065
  2. LORAZEPAM. [Suspect]
     Active Substance: LORAZEPAM
     Indication: PRODUCT USED FOR UNKNOWN INDICATION
     Route: 065
  3. TARGIN [Suspect]
     Active Substance: NALOXONE HYDROCHLORIDE\OXYCODONE HYDROCHLORIDE
     Indication: PRODUCT USED FOR UNKNOWN INDICATION
     Route: 065

REACTIONS (1)
  - Upper limb fracture [Recovering/Resolving]

NARRATIVE: CASE EVENT DATE: 20180430
